FAERS Safety Report 12988345 (Version 6)
Quarter: 2018Q3

REPORT INFORMATION
  Report Type: Report from Study
  Country: FR (occurrence: FR)
  Receive Date: 20161130
  Receipt Date: 20180817
  Transmission Date: 20181010
  Serious: Yes (Hospitalization, Other)
  Sender: FDA-Public Use
  Company Number: PHHY2016FR040254

PATIENT
  Age: 45 Year
  Sex: Male

DRUGS (18)
  1. CERTICAN [Suspect]
     Active Substance: EVEROLIMUS
     Indication: LIVER TRANSPLANT
     Dosage: 2 MG, QD
     Route: 048
     Dates: start: 20150507, end: 20150603
  2. PROGRAF [Concomitant]
     Active Substance: TACROLIMUS\TACROLIMUS ANHYDROUS
     Dosage: 5 MG, QD
     Route: 065
     Dates: start: 20140827, end: 20140918
  3. CERTICAN [Suspect]
     Active Substance: EVEROLIMUS
     Dosage: 3 MG, QD
     Route: 048
     Dates: start: 20150811, end: 20180704
  4. CERTICAN [Suspect]
     Active Substance: EVEROLIMUS
     Dosage: 2.5 MG, QD
     Route: 048
     Dates: start: 20150716, end: 20150810
  5. CERTICAN [Suspect]
     Active Substance: EVEROLIMUS
     Dosage: 3.5 MG, QD
     Route: 048
     Dates: start: 20180705
  6. PROGRAF [Concomitant]
     Active Substance: TACROLIMUS\TACROLIMUS ANHYDROUS
     Dosage: 4 MG, QD
     Route: 065
     Dates: start: 20141013, end: 20141127
  7. PROGRAF [Concomitant]
     Active Substance: TACROLIMUS\TACROLIMUS ANHYDROUS
     Dosage: 1.5 MG, QD
     Route: 065
     Dates: start: 20150604, end: 20150715
  8. CORTANCYL [Concomitant]
     Active Substance: PREDNISONE
     Dosage: 2 MG, QD
     Route: 065
     Dates: start: 20140624, end: 20140724
  9. CORTANCYL [Concomitant]
     Active Substance: PREDNISONE
     Indication: IMMUNOSUPPRESSANT DRUG THERAPY
     Dosage: 4 MG, QD
     Route: 065
     Dates: start: 20140327, end: 20140518
  10. CORTANCYL [Concomitant]
     Active Substance: PREDNISONE
     Dosage: 1 MG, QD
     Route: 065
     Dates: start: 20140725, end: 20140826
  11. PROGRAF [Concomitant]
     Active Substance: TACROLIMUS\TACROLIMUS ANHYDROUS
     Dosage: 4.5 MG, QD
     Route: 065
     Dates: start: 20140919, end: 20141012
  12. PROGRAF [Concomitant]
     Active Substance: TACROLIMUS\TACROLIMUS ANHYDROUS
     Dosage: 3 MG, QD
     Route: 065
     Dates: start: 20141128, end: 20150506
  13. CELLCEPT [Concomitant]
     Active Substance: MYCOPHENOLATE MOFETIL\MYCOPHENOLATE MOFETIL HYDROCHLORIDE
     Indication: IMMUNOSUPPRESSANT DRUG THERAPY
     Dosage: 1000 MG, QD
     Route: 065
     Dates: start: 20150507, end: 20171128
  14. PROGRAF [Concomitant]
     Active Substance: TACROLIMUS\TACROLIMUS ANHYDROUS
     Dosage: 5.5 MG, QD
     Route: 065
     Dates: start: 20140424, end: 20140826
  15. CORTANCYL [Concomitant]
     Active Substance: PREDNISONE
     Dosage: 3 MG, QD
     Route: 065
     Dates: start: 20140519, end: 20140623
  16. CERTICAN [Suspect]
     Active Substance: EVEROLIMUS
     Indication: IMMUNOSUPPRESSANT DRUG THERAPY
     Dosage: 3 MG, QD
     Route: 048
     Dates: start: 20150604, end: 20150715
  17. PROGRAF [Concomitant]
     Active Substance: TACROLIMUS\TACROLIMUS ANHYDROUS
     Indication: IMMUNOSUPPRESSANT DRUG THERAPY
     Dosage: 7 MG, QD
     Route: 065
     Dates: start: 20140327, end: 20140423
  18. PROGRAF [Concomitant]
     Active Substance: TACROLIMUS\TACROLIMUS ANHYDROUS
     Dosage: 2 MG, QD
     Route: 065
     Dates: start: 20150507, end: 20150603

REACTIONS (15)
  - Hyperkalaemia [Recovered/Resolved]
  - Enterocolitis [Recovering/Resolving]
  - Abdominal pain upper [Unknown]
  - Escherichia infection [Recovering/Resolving]
  - Cholestasis [Recovering/Resolving]
  - Pyrexia [Not Recovered/Not Resolved]
  - Biliary anastomosis complication [Recovered/Resolved]
  - Biliary anastomosis complication [Unknown]
  - Chills [Not Recovered/Not Resolved]
  - Biliary anastomosis complication [Recovered/Resolved]
  - Pyrexia [Recovered/Resolved]
  - Pyrexia [Recovered/Resolved]
  - Acute kidney injury [Recovering/Resolving]
  - Cholangitis [Not Recovered/Not Resolved]
  - Chills [Recovered/Resolved]

NARRATIVE: CASE EVENT DATE: 20150805
